FAERS Safety Report 20432509 (Version 1)
Quarter: 2022Q1

REPORT INFORMATION
  Report Type: Spontaneous
  Country: US (occurrence: US)
  Receive Date: 20220204
  Receipt Date: 20220204
  Transmission Date: 20220423
  Serious: No
  Sender: FDA-Public Use
  Company Number: US-PERRIGO-21US009737

PATIENT
  Sex: Female

DRUGS (1)
  1. TRETINOIN [Suspect]
     Active Substance: TRETINOIN
     Indication: Skin wrinkling
     Dosage: PEA-SIZED AMOUNT, NIGHTLY
     Route: 061

REACTIONS (2)
  - Application site exfoliation [Recovered/Resolved]
  - Off label use [Not Recovered/Not Resolved]
